FAERS Safety Report 15925230 (Version 1)
Quarter: 2019Q1

REPORT INFORMATION
  Report Type: Spontaneous
  Country: US (occurrence: US)
  Receive Date: 20190206
  Receipt Date: 20190206
  Transmission Date: 20190417
  Serious: No
  Sender: FDA-Public Use
  Company Number: None

PATIENT
  Age: 12 Year
  Sex: Male
  Weight: 40.5 kg

DRUGS (4)
  1. PROBIOTIC [Concomitant]
     Active Substance: PROBIOTICS NOS
  2. MUCINEX FAST-MAX NIGHT TIME COLD AND FLU (ACETAMINOPHEN\DIPHENHYDR\PHENYLEP) [Suspect]
     Active Substance: ACETAMINOPHEN\DIPHENHYDRAMINE HYDROCHLORIDE\PHENYLEPHRINE HYDROCHLORIDE
     Indication: INFLUENZA
     Dosage: ?          QUANTITY:1 ML;?
     Route: 048
     Dates: start: 20190204, end: 20190205
  3. DAILY CHILDREN^S VITAMIN, [Concomitant]
  4. SAMBUCUS ELDERBERRY [Concomitant]

REACTIONS (4)
  - Discomfort [None]
  - Erythema [None]
  - Rash [None]
  - Abdominal pain upper [None]

NARRATIVE: CASE EVENT DATE: 20190205
